FAERS Safety Report 21447445 (Version 1)
Quarter: 2022Q4

REPORT INFORMATION
  Report Type: Spontaneous
  Country: US (occurrence: US)
  Receive Date: 20221012
  Receipt Date: 20221012
  Transmission Date: 20230112
  Serious: Yes (Other)
  Sender: FDA-Public Use
  Company Number: US-SUNOVION-2022SUN002881

PATIENT
  Age: 61 Year
  Sex: Female

DRUGS (2)
  1. KYNMOBI [Suspect]
     Active Substance: APOMORPHINE HYDROCHLORIDE
     Indication: Parkinson^s disease
     Dosage: 10 MG
     Route: 060
     Dates: start: 20220928, end: 20220929
  2. SINEMET [Suspect]
     Active Substance: CARBIDOPA\LEVODOPA
     Dosage: 25-100MG, 12 PILLS A DAY
     Route: 048

REACTIONS (14)
  - Blindness [Recovered/Resolved]
  - Drug ineffective [Unknown]
  - Heart rate irregular [Unknown]
  - Hyperacusis [Recovered/Resolved]
  - Palpitations [Not Recovered/Not Resolved]
  - Slow response to stimuli [Recovered/Resolved]
  - Toxicity to various agents [Unknown]
  - Vertigo [Unknown]
  - Visual impairment [Recovered/Resolved]
  - Dysphagia [Unknown]
  - Dyskinesia [Unknown]
  - Headache [Recovered/Resolved]
  - Hypersensitivity [Unknown]
  - Oropharyngeal pain [Recovered/Resolved]

NARRATIVE: CASE EVENT DATE: 20220928
